FAERS Safety Report 7034420-6 (Version None)
Quarter: 2010Q4

REPORT INFORMATION
  Report Type: 
  Country: None (occurrence: None)
  Receive Date: 20101008
  Receipt Date: 20100928
  Transmission Date: 20110411
  Serious: Yes (Other)
  Sender: FDA-Public Use
  Company Number: PHFR2007GB02386

PATIENT
  Sex: Male

DRUGS (2)
  1. CLOZARIL [Suspect]
     Indication: SCHIZOPHRENIA
     Dosage: 350 MG DAILY
     Route: 048
     Dates: start: 20050516
  2. CLOZARIL [Suspect]
     Route: 048
     Dates: start: 20050516, end: 19000101

REACTIONS (1)
  - MEAN CELL VOLUME DECREASED [None]
